FAERS Safety Report 8131418-1 (Version None)
Quarter: 2012Q1

REPORT INFORMATION
  Report Type: 
  Country: None (occurrence: None)
  Receive Date: 20120207
  Receipt Date: 20120125
  Transmission Date: 20120608
  Serious: Yes (Death, Hospitalization, Other)
  Sender: FDA-Public Use
  Company Number: IMP_05726_2012

PATIENT
  Sex: Male

DRUGS (4)
  1. QUETIAPINE [Suspect]
     Dosage: (DF)
  2. METOPROLOL TARTRATE [Suspect]
     Dosage: (DF)
  3. LISINOPRIL [Suspect]
     Dosage: (DF)
  4. BUPROPION HCL [Suspect]
     Dosage: (DF)

REACTIONS (7)
  - HYPOPERFUSION [None]
  - TOXICITY TO VARIOUS AGENTS [None]
  - CARDIAC ARREST [None]
  - BLOOD GLUCOSE INCREASED [None]
  - CARDIOGENIC SHOCK [None]
  - PULSELESS ELECTRICAL ACTIVITY [None]
  - HYPOKALAEMIA [None]
